FAERS Safety Report 22269767 (Version 1)
Quarter: 2023Q2

REPORT INFORMATION
  Report Type: Spontaneous
  Country: US (occurrence: None)
  Receive Date: 20230427
  Receipt Date: 20230427
  Transmission Date: 20230722
  Serious: Yes (Hospitalization, Other)
  Sender: FDA-Public Use
  Company Number: None

PATIENT
  Age: 41 Year
  Sex: Female
  Weight: 56.7 kg

DRUGS (7)
  1. SKYLA [Suspect]
     Active Substance: LEVONORGESTREL
  2. LEVOTHYROXINE [Concomitant]
     Active Substance: LEVOTHYROXINE
  3. ARMOUR THYROID [Concomitant]
     Active Substance: THYROID, PORCINE
  4. URSODIOL [Concomitant]
     Active Substance: URSODIOL
  5. URSODIOL [Concomitant]
     Active Substance: URSODIOL
  6. SILYBIN PHYTOSOME [Concomitant]
  7. Gluthathione [Concomitant]

REACTIONS (3)
  - Gastroenteritis viral [None]
  - Alanine aminotransferase increased [None]
  - Complication associated with device [None]

NARRATIVE: CASE EVENT DATE: 20230101
